FAERS Safety Report 7089188-4 (Version None)
Quarter: 2010Q4

REPORT INFORMATION
  Report Type: 
  Country: None (occurrence: None)
  Receive Date: 20101108
  Receipt Date: 20101026
  Transmission Date: 20110411
  Serious: Yes (Hospitalization, Other)
  Sender: FDA-Public Use
  Company Number: PHHY2010FR73121

PATIENT
  Sex: Female

DRUGS (5)
  1. TRILEPTAL [Suspect]
     Dosage: 150 MG, BID
     Route: 048
     Dates: start: 20100603
  2. TRILEPTAL [Suspect]
     Dosage: 300 MG, BID
     Route: 048
     Dates: end: 20100909
  3. BIMATOPROST AND TIMOLOL MALEATE [Suspect]
     Dosage: UNK
     Dates: start: 20060620
  4. TRIMEPRAZINE TAB [Concomitant]
     Dosage: UNK
     Route: 048
     Dates: start: 20100629
  5. NEBIVOLOL HCL [Concomitant]
     Dosage: UNK
     Dates: start: 20070201, end: 20100906

REACTIONS (9)
  - ATRIOVENTRICULAR BLOCK COMPLETE [None]
  - ATRIOVENTRICULAR BLOCK FIRST DEGREE [None]
  - BUNDLE BRANCH BLOCK LEFT [None]
  - CARDIAC ARREST [None]
  - FALL [None]
  - HYPONATRAEMIA [None]
  - LOSS OF CONSCIOUSNESS [None]
  - MALAISE [None]
  - URINARY INCONTINENCE [None]
